FAERS Safety Report 9225680 (Version 1)
Quarter: 2013Q2

REPORT INFORMATION
  Report Type: Spontaneous
  Country: FR (occurrence: FR)
  Receive Date: 20130411
  Receipt Date: 20130411
  Transmission Date: 20140414
  Serious: Yes (Hospitalization)
  Sender: FDA-Public Use
  Company Number: FR-009507513-1304FRA001351

PATIENT
  Age: 62 Year
  Sex: Male

DRUGS (6)
  1. ORGARAN [Suspect]
     Dosage: UNK
     Route: 042
     Dates: start: 20121118, end: 20121205
  2. ORGARAN [Suspect]
     Dosage: UNK
     Dates: start: 20121210
  3. PLAVIX [Suspect]
     Dosage: 75 MG, UNK
     Route: 048
     Dates: end: 20121201
  4. PLAVIX [Suspect]
     Dosage: UNK
  5. KARDEGIC [Suspect]
     Dosage: 75 MG, QD
     Route: 048
     Dates: end: 20121201
  6. KARDEGIC [Suspect]
     Dosage: UNK

REACTIONS (2)
  - Anaemia [Recovered/Resolved]
  - Melaena [Recovered/Resolved with Sequelae]
